FAERS Safety Report 8111171-8 (Version None)
Quarter: 2012Q1

REPORT INFORMATION
  Report Type: 
  Country: None (occurrence: None)
  Receive Date: 20120203
  Receipt Date: 20110601
  Transmission Date: 20120608
  Serious: No
  Sender: FDA-Public Use
  Company Number: US-GLAXOSMITHKLINE-A0929867A

PATIENT
  Age: 62 Year
  Sex: Male

DRUGS (4)
  1. ASPIRIN [Concomitant]
  2. LAMICTAL [Suspect]
     Indication: CONVULSION
     Dosage: 150MG TWICE PER DAY
     Route: 048
     Dates: start: 20090101
  3. VITAMIN D [Concomitant]
  4. CALCIUM [Concomitant]

REACTIONS (1)
  - INSOMNIA [None]
